FAERS Safety Report 7541038-5 (Version None)
Quarter: 2011Q2

REPORT INFORMATION
  Report Type: 
  Country: None (occurrence: None)
  Receive Date: 20110610
  Receipt Date: 20100928
  Transmission Date: 20111010
  Serious: No
  Sender: FDA-Public Use
  Company Number: A0883778A

PATIENT
  Sex: Male

DRUGS (2)
  1. FUNGICIDE [Concomitant]
  2. ALTABAX [Suspect]
     Indication: SKIN INFECTION
     Dosage: 1APP TWICE PER DAY
     Route: 061
     Dates: start: 20100618, end: 20100623

REACTIONS (4)
  - LIP PRURITUS [None]
  - PARAESTHESIA [None]
  - NASAL DISCOMFORT [None]
  - PARAESTHESIA ORAL [None]
